FAERS Safety Report 8758003 (Version 2)
Quarter: 2012Q4

REPORT INFORMATION
  Report Type: 
  Country: ES (occurrence: ES)
  Receive Date: 20120828
  Receipt Date: 20121030
  Transmission Date: 20130627
  Serious: Yes (Other)
  Sender: FDA-Public Use
  Company Number: ES-AMGEN-ESPSP2012053528

PATIENT
  Age: 60 Year
  Sex: Female
  Weight: 68 kg

DRUGS (9)
  1. ENBREL [Suspect]
     Indication: RHEUMATOID ARTHRITIS
     Dosage: 50 mg, weekly
     Route: 058
     Dates: start: 20120501, end: 20121002
  2. CEMIDON [Concomitant]
     Indication: TUBERCULOSIS
     Dosage: 300 mg, at breakfast
     Route: 048
     Dates: start: 201205, end: 201207
  3. METHOTREXATE [Concomitant]
     Indication: RHEUMATOID ARTHRITIS
     Dosage: 3 tablets / week, at the same time of ENBREL
     Route: 048
     Dates: start: 201205, end: 20121002
  4. ACFOL [Concomitant]
     Indication: RHEUMATOID ARTHRITIS
     Dosage: administered the day after the ENBREL injection.
     Route: 048
     Dates: start: 201205
  5. CYMBALTA [Concomitant]
     Indication: DEPRESSION
     Dosage: 500 mg, at breakfast
     Route: 048
     Dates: start: 2011
  6. ORFIDAL [Concomitant]
     Indication: ANXIETY
     Dosage: 1 mg, at breakfast
     Route: 048
  7. ORFIDAL [Concomitant]
     Indication: INSOMNIA
  8. FOSAVANCE [Concomitant]
     Indication: BLOOD CALCIUM
     Dosage: 1 tablet weekly
     Route: 048
     Dates: start: 201008
  9. TERMALGIN [Concomitant]
     Indication: ANALGESIC THERAPY
     Dosage: 650 mg as needed
     Route: 048

REACTIONS (4)
  - Dizziness [Recovered/Resolved]
  - Monoplegia [Not Recovered/Not Resolved]
  - Arthritis [Not Recovered/Not Resolved]
  - Drug ineffective [Not Recovered/Not Resolved]
